FAERS Safety Report 20446584 (Version 1)
Quarter: 2022Q1

REPORT INFORMATION
  Report Type: Spontaneous
  Country: US (occurrence: US)
  Receive Date: 20220208
  Receipt Date: 20220208
  Transmission Date: 20220424
  Serious: No
  Sender: FDA-Public Use
  Company Number: US-IBSA PHARMA INC.-2020IBS000283

PATIENT

DRUGS (4)
  1. TIROSINT-SOL [Suspect]
     Active Substance: LEVOTHYROXINE SODIUM
     Indication: Thyroid disorder
     Dosage: 50 ?G, QD
     Route: 048
  2. B12                                /00056201/ [Concomitant]
     Indication: Product used for unknown indication
     Dosage: UNK UNK, QMONTH
     Route: 065
  3. VITAMIN C                          /00008001/ [Concomitant]
     Indication: Product used for unknown indication
     Dosage: UNK UNK, QD
     Route: 065
  4. VITAMIN D                          /00107901/ [Concomitant]
     Indication: Product used for unknown indication
     Dosage: 50 ?G, QD
     Route: 065

REACTIONS (6)
  - Pain in extremity [Unknown]
  - Pain in extremity [Unknown]
  - Vaginal haemorrhage [Unknown]
  - Vaginal discharge [Unknown]
  - Arthralgia [Unknown]
  - Arthralgia [Unknown]

NARRATIVE: CASE EVENT DATE: 20200101
